FAERS Safety Report 11570365 (Version 2)
Quarter: 2015Q4

REPORT INFORMATION
  Report Type: Spontaneous
  Country: US (occurrence: US)
  Receive Date: 20150929
  Receipt Date: 20151005
  Transmission Date: 20160304
  Serious: Yes (Death, Hospitalization, Disabling, Other)
  Sender: FDA-Public Use
  Company Number: US-009507513-1509USA013922

PATIENT
  Sex: Female

DRUGS (1)
  1. JANUMET [Suspect]
     Active Substance: METFORMIN HYDROCHLORIDE\SITAGLIPTIN PHOSPHATE
     Indication: TYPE 2 DIABETES MELLITUS
     Dosage: 50/500MG, BID
     Route: 048
     Dates: start: 20110919, end: 20111120

REACTIONS (11)
  - Endometriosis [Unknown]
  - Dyslipidaemia [Unknown]
  - Death [Fatal]
  - Anaemia [Unknown]
  - Pancreatic carcinoma [Unknown]
  - Thyroid neoplasm [Unknown]
  - Deep vein thrombosis [Unknown]
  - Constipation [Unknown]
  - Appendicectomy [Unknown]
  - Chest pain [Unknown]
  - Metastases to liver [Unknown]

NARRATIVE: CASE EVENT DATE: 20111128
